FAERS Safety Report 5512498-6 (Version None)
Quarter: 2007Q4

REPORT INFORMATION
  Report Type: 
  Country: None (occurrence: None)
  Receive Date: 20071112
  Receipt Date: 20070523
  Transmission Date: 20080405
  Serious: No
  Sender: FDA-Public Use
  Company Number: A0652646A

PATIENT
  Sex: Male

DRUGS (2)
  1. AVANDAMET [Suspect]
     Dosage: 1TAB TWICE PER DAY
     Route: 048
     Dates: start: 20060901, end: 20070522
  2. VALIUM [Concomitant]

REACTIONS (3)
  - HEADACHE [None]
  - IRRITABILITY [None]
  - PALPITATIONS [None]
